FAERS Safety Report 4558155-4 (Version None)
Quarter: 2005Q1

REPORT INFORMATION
  Report Type: 
  Country: None (occurrence: None)
  Receive Date: 20050103
  Receipt Date: 20040927
  Transmission Date: 20050727
  Serious: Yes (Other)
  Sender: FDA-Public Use
  Company Number: 2004UW20320

PATIENT
  Age: 75 Year
  Sex: Female
  Weight: 61.2356 kg

DRUGS (5)
  1. CRESTOR [Suspect]
     Indication: BLOOD CHOLESTEROL INCREASED
     Dosage: 5 MG HS PO
     Route: 048
  2. ACTONEL [Concomitant]
  3. LEVOXYL [Concomitant]
  4. DIOVAN [Concomitant]
  5. CLONIDINE [Concomitant]

REACTIONS (1)
  - TREMOR [None]
